FAERS Safety Report 14304317 (Version 1)
Quarter: 2017Q4

REPORT INFORMATION
  Report Type: Spontaneous
  Country: US (occurrence: US)
  Receive Date: 20171219
  Receipt Date: 20171219
  Transmission Date: 20180321
  Serious: Yes (Other)
  Sender: FDA-Public Use
  Company Number: US-OTSUKA-DJ20072051

PATIENT
  Sex: Female
  Weight: 54.42 kg

DRUGS (2)
  1. LAMICTAL [Suspect]
     Active Substance: LAMOTRIGINE
     Indication: PRODUCT USED FOR UNKNOWN INDICATION
     Dosage: UNK
     Route: 065
  2. ABILIFY [Suspect]
     Active Substance: ARIPIPRAZOLE
     Indication: BIPOLAR DISORDER
     Dosage: UNK
     Route: 048
     Dates: start: 20050115, end: 20070125

REACTIONS (9)
  - Ataxia [Unknown]
  - Ruptured cerebral aneurysm [Unknown]
  - Gait disturbance [Unknown]
  - Insomnia [Unknown]
  - Tremor [Unknown]
  - Vision blurred [Unknown]
  - Tongue disorder [Unknown]
  - Coordination abnormal [Unknown]
  - Cognitive disorder [Unknown]
